FAERS Safety Report 6539583-4 (Version None)
Quarter: 2010Q1

REPORT INFORMATION
  Report Type: 
  Country: None (occurrence: None)
  Receive Date: 20100111
  Receipt Date: 20100104
  Transmission Date: 20100710
  Serious: Yes (Other)
  Sender: FDA-Public Use
  Company Number: 1000011081

PATIENT
  Age: 78 Year
  Sex: Female

DRUGS (7)
  1. THYROID TAB [Suspect]
     Indication: HYPOTHYROIDISM
     Dosage: 120 MG (120 MG, 1 IN 1 D), ORAL
     Route: 048
     Dates: start: 19530101, end: 20091217
  2. THEOPHYLLINE [Suspect]
  3. BENICAR [Concomitant]
  4. EVISTA [Concomitant]
  5. ASPIRIN [Concomitant]
  6. FISH OIL [Concomitant]
  7. FLAXSEED [Concomitant]

REACTIONS (4)
  - BREAST CANCER FEMALE [None]
  - BUNDLE BRANCH BLOCK LEFT [None]
  - COUGH [None]
  - PALPITATIONS [None]
